FAERS Safety Report 11310577 (Version 1)
Quarter: 2015Q3

REPORT INFORMATION
  Report Type: Spontaneous
  Country: US (occurrence: US)
  Receive Date: 20150724
  Receipt Date: 20150724
  Transmission Date: 20151125
  Serious: Yes (Death)
  Sender: FDA-Public Use
  Company Number: US-GALENA BIOPHARMA-1040724

PATIENT
  Age: 71 Year
  Sex: Male
  Weight: 77.27 kg

DRUGS (1)
  1. ABSTRAL [Suspect]
     Active Substance: FENTANYL CITRATE
     Indication: PAIN
     Route: 060
     Dates: start: 20140627

REACTIONS (4)
  - Clot retraction abnormal [Not Recovered/Not Resolved]
  - Multi-organ failure [Fatal]
  - Sepsis [Not Recovered/Not Resolved]
  - Septic embolus [None]
